FAERS Safety Report 20884478 (Version 1)
Quarter: 2022Q2

REPORT INFORMATION
  Report Type: Spontaneous
  Country: FR (occurrence: FR)
  Receive Date: 20220527
  Receipt Date: 20220527
  Transmission Date: 20220721
  Serious: Yes (Other)
  Sender: FDA-Public Use
  Company Number: None

PATIENT
  Age: 5 Year
  Sex: Female
  Weight: 15 kg

DRUGS (2)
  1. RISPERDAL [Suspect]
     Active Substance: RISPERIDONE
     Indication: Behaviour disorder
     Dosage: 1ML A 12H PUIS A 20H
     Route: 048
     Dates: start: 20220430
  2. RISPERDAL [Suspect]
     Active Substance: RISPERIDONE
     Indication: Incorrect dose administered
     Route: 048

REACTIONS (2)
  - Incorrect dose administered [Recovered/Resolved]
  - Extrapyramidal disorder [Unknown]

NARRATIVE: CASE EVENT DATE: 20220430
